FAERS Safety Report 7373067-9 (Version None)
Quarter: 2011Q1

REPORT INFORMATION
  Report Type: 
  Country: None (occurrence: None)
  Receive Date: 20110314
  Receipt Date: 20110226
  Transmission Date: 20110831
  Serious: Yes (Other)
  Sender: FDA-Public Use
  Company Number: AUR-APL-2011-00772

PATIENT
  Age: 8 Year
  Sex: Male

DRUGS (20)
  1. TRIMETHOPRIM + SULFAMETHOXAZOLE [Concomitant]
  2. VANCOMYCIN [Concomitant]
  3. VECURONIUM BROMIDE [Concomitant]
  4. MIDAZOLAM HCL [Concomitant]
  5. AMLODIPINE [Suspect]
     Indication: HYPERTENSION
     Dosage: 5MG-QD - NASOGASTRIC TUBE
  6. LEUCOVORIN [Concomitant]
  7. MORPHINE SULFATE [Concomitant]
  8. TPN ELECTROLYTES IN PLASTIC CONTAINER [Concomitant]
  9. CEFEPIME [Concomitant]
  10. DIPHENHYDRAMINE HCL [Concomitant]
  11. FLUCONAZOLE [Concomitant]
  12. LIDOCAINE [Concomitant]
  13. NICARDIPINE [Suspect]
     Indication: HYPERTENSION
     Dosage: 1MCG/KG/MIN, IV
     Route: 042
  14. PRILOCAINE HYDROCHLORIDE [Concomitant]
  15. ONDANSETRON [Concomitant]
  16. FAMOTIDINE [Concomitant]
  17. HEPARIN SODIUM [Concomitant]
  18. THIAMINE [Concomitant]
  19. BACITRACIN [Concomitant]
  20. FENTANYL [Concomitant]

REACTIONS (15)
  - DIALYSIS [None]
  - ABDOMINAL PAIN [None]
  - RENAL FAILURE ACUTE [None]
  - HYPERTENSION [None]
  - MUCOSAL INFLAMMATION [None]
  - TUMOUR LYSIS SYNDROME [None]
  - MACROGLOSSIA [None]
  - BURKITT'S LYMPHOMA [None]
  - HYPOTENSION [None]
  - SWELLING FACE [None]
  - ABSCESS [None]
  - THROMBOSIS [None]
  - ANGIOEDEMA [None]
  - ABDOMINAL DISTENSION [None]
  - INFECTION [None]
